FAERS Safety Report 7390418-X (Version None)
Quarter: 2011Q2

REPORT INFORMATION
  Report Type: 
  Country: None (occurrence: None)
  Receive Date: 20110401
  Receipt Date: 20110322
  Transmission Date: 20111010
  Serious: Yes (Disabling, Other)
  Sender: FDA-Public Use
  Company Number: IE-ELI_LILLY_AND_COMPANY-IE201102005546

PATIENT
  Sex: Female
  Weight: 47 kg

DRUGS (3)
  1. IDEOS [Concomitant]
  2. ATORVASTATIN CALCIUM [Concomitant]
  3. FORTEO [Suspect]
     Indication: OSTEOPOROSIS
     Dosage: UNK, UNKNOWN
     Route: 065
     Dates: start: 20090201, end: 20110124

REACTIONS (2)
  - SARCOMA [None]
  - INJURY [None]
